FAERS Safety Report 6634983-6 (Version None)
Quarter: 2010Q1

REPORT INFORMATION
  Report Type: 
  Country: None (occurrence: None)
  Receive Date: 20100315
  Receipt Date: 20100304
  Transmission Date: 20100710
  Serious: Yes (Death, Other)
  Sender: FDA-Public Use
  Company Number: US-BAXTER-2009BH011589

PATIENT
  Sex: Female

DRUGS (22)
  1. HEPARIN SODIUM INJECTION [Suspect]
     Indication: PROPHYLAXIS
     Route: 065
     Dates: start: 20050502, end: 20071001
  2. HEPARIN SODIUM INJECTION [Suspect]
     Route: 065
     Dates: start: 20051215, end: 20051223
  3. HEPARIN SODIUM INJECTION [Suspect]
     Route: 058
     Dates: start: 20060326, end: 20060612
  4. HEPARIN SODIUM INJECTION [Suspect]
     Route: 065
     Dates: start: 20051215, end: 20051223
  5. HEPARIN SODIUM INJECTION [Suspect]
     Route: 065
     Dates: start: 20060601, end: 20060628
  6. PREGABALIN [Suspect]
     Dates: start: 20061001, end: 20061001
  7. CLONIDINE [Concomitant]
     Indication: DRUG USE FOR UNKNOWN INDICATION
     Route: 065
  8. PHOSLO [Concomitant]
     Indication: DRUG USE FOR UNKNOWN INDICATION
     Route: 065
  9. AMLODIPINE [Concomitant]
     Indication: DRUG USE FOR UNKNOWN INDICATION
     Route: 065
  10. PRAVACHOL [Concomitant]
     Indication: DRUG USE FOR UNKNOWN INDICATION
     Route: 065
  11. COREG [Concomitant]
     Indication: DRUG USE FOR UNKNOWN INDICATION
     Route: 065
  12. HYDRALAZINE HCL [Concomitant]
     Indication: DRUG USE FOR UNKNOWN INDICATION
     Route: 065
  13. ASPIRIN [Concomitant]
     Indication: DRUG USE FOR UNKNOWN INDICATION
     Route: 065
  14. FLUOXETINE [Concomitant]
     Indication: DRUG USE FOR UNKNOWN INDICATION
     Route: 065
  15. CALCITRIOL [Concomitant]
     Indication: DRUG USE FOR UNKNOWN INDICATION
     Route: 065
  16. TORSEMIDE [Concomitant]
     Indication: DRUG USE FOR UNKNOWN INDICATION
     Route: 065
  17. DOXAZOSIN [Concomitant]
     Indication: DRUG USE FOR UNKNOWN INDICATION
     Route: 065
  18. ISOSORBIDE [Concomitant]
     Indication: DRUG USE FOR UNKNOWN INDICATION
     Route: 065
  19. ALLEGRA [Concomitant]
     Indication: DRUG USE FOR UNKNOWN INDICATION
     Route: 065
  20. EPOGEN [Concomitant]
     Indication: DRUG USE FOR UNKNOWN INDICATION
     Route: 065
  21. INSULIN [Concomitant]
     Indication: DRUG USE FOR UNKNOWN INDICATION
     Route: 065
  22. IRON [Concomitant]
     Indication: DRUG USE FOR UNKNOWN INDICATION
     Route: 065

REACTIONS (32)
  - ARRHYTHMIA [None]
  - ARTERIOSCLEROSIS CORONARY ARTERY [None]
  - ATRIAL FIBRILLATION [None]
  - BLOOD PRESSURE FLUCTUATION [None]
  - BRADYCARDIA [None]
  - CARDIAC ARREST [None]
  - CEREBROVASCULAR DISORDER [None]
  - CHEST PAIN [None]
  - CLOSTRIDIUM TEST POSITIVE [None]
  - DEHYDRATION [None]
  - DIVERTICULUM [None]
  - DIZZINESS [None]
  - DRUG TOXICITY [None]
  - FLUID OVERLOAD [None]
  - GASTROENTERITIS [None]
  - HYPOTENSION [None]
  - INCISION SITE INFECTION [None]
  - LARGE INTESTINE PERFORATION [None]
  - METABOLIC ENCEPHALOPATHY [None]
  - MULTI-ORGAN FAILURE [None]
  - NAUSEA [None]
  - PERIPHERAL VASCULAR DISORDER [None]
  - PERITONITIS [None]
  - PNEUMONIA [None]
  - POLYNEUROPATHY [None]
  - PRURITUS [None]
  - RENAL FAILURE CHRONIC [None]
  - RESPIRATORY FAILURE [None]
  - SUPRAVENTRICULAR TACHYCARDIA [None]
  - UROSEPSIS [None]
  - VISION BLURRED [None]
  - VOMITING [None]
